FAERS Safety Report 9238643 (Version 1)
Quarter: 2013Q1

REPORT INFORMATION
  Report Type: Spontaneous
  Country: US (occurrence: None)
  Receive Date: 20121106
  Receipt Date: 20121106
  Transmission Date: 20140127
  Serious: No
  Sender: FDA-Public Use
  Company Number: 1000037860

PATIENT
  Age: 88 Year
  Sex: Female

DRUGS (4)
  1. DALIRESP [Suspect]
     Indication: CHRONIC OBSTRUCTIVE PULMONARY DISEASE
     Route: 048
     Dates: start: 20120805, end: 20120812
  2. ALBUTEROL (ALBUTEROL) (ALBUTEROL) [Concomitant]
  3. OXYGEN (OXYGEN) (OXYGEN) [Concomitant]
  4. PRILOSEC (OMEPRAZOLE) (OMEPRAZOLE) [Concomitant]

REACTIONS (5)
  - Abdominal pain upper [None]
  - Muscle spasms [None]
  - Back pain [None]
  - Insomnia [None]
  - Dizziness [None]
